FAERS Safety Report 13457366 (Version 1)
Quarter: 2017Q2

REPORT INFORMATION
  Report Type: Spontaneous
  Country: US (occurrence: US)
  Receive Date: 20170418
  Receipt Date: 20170418
  Transmission Date: 20170830
  Serious: Yes (Other)
  Sender: FDA-Public Use
  Company Number: None

PATIENT
  Age: 39 Year
  Sex: Female
  Weight: 65.25 kg

DRUGS (5)
  1. SUPPLEMENTS [Concomitant]
     Active Substance: UNSPECIFIED INGREDIENT
  2. MIRTAZAPINE. [Concomitant]
     Active Substance: MIRTAZAPINE
  3. ARIPIPRAZOLE. [Suspect]
     Active Substance: ARIPIPRAZOLE
     Indication: BIPOLAR DISORDER
     Dosage: ?          QUANTITY:45 TABLET(S);?
     Route: 048
     Dates: start: 20121001
  4. ARIPIPRAZOLE. [Suspect]
     Active Substance: ARIPIPRAZOLE
     Indication: SCHIZOPHRENIA
     Dosage: ?          QUANTITY:45 TABLET(S);?
     Route: 048
     Dates: start: 20121001
  5. IBUPROFEN. [Concomitant]
     Active Substance: IBUPROFEN

REACTIONS (12)
  - Hangover [None]
  - Mood altered [None]
  - Malaise [None]
  - Tinea versicolour [None]
  - Pathogen resistance [None]
  - Nausea [None]
  - Akathisia [None]
  - Therapy cessation [None]
  - Drug use disorder [None]
  - Bacterial vaginosis [None]
  - Pruritus [None]
  - Drug dose omission [None]

NARRATIVE: CASE EVENT DATE: 20140615
